FAERS Safety Report 5700997-3 (Version None)
Quarter: 2008Q2

REPORT INFORMATION
  Report Type: 
  Country: None (occurrence: None)
  Receive Date: 20080410
  Receipt Date: 20080402
  Transmission Date: 20081010
  Serious: Yes (Other)
  Sender: FDA-Public Use
  Company Number: MX-JNJFOC-20080306530

PATIENT
  Age: 17 Year
  Sex: Female
  Weight: 52.6 kg

DRUGS (3)
  1. RISPERIDONE [Suspect]
  2. RISPERIDONE [Suspect]
     Indication: DELUSIONAL DISORDER, PERSECUTORY TYPE
  3. CLOZAPINE [Suspect]
     Indication: PSYCHOTIC DISORDER

REACTIONS (8)
  - AMENORRHOEA [None]
  - HEPATIC ENZYME INCREASED [None]
  - HEPATIC STEATOSIS [None]
  - HEPATOMEGALY [None]
  - HYPERLIPIDAEMIA [None]
  - SKIN STRIAE [None]
  - TREATMENT NONCOMPLIANCE [None]
  - WEIGHT INCREASED [None]
